FAERS Safety Report 18760429 (Version 1)
Quarter: 2021Q1

REPORT INFORMATION
  Report Type: Spontaneous
  Country: US (occurrence: US)
  Receive Date: 20210120
  Receipt Date: 20210120
  Transmission Date: 20210419
  Serious: Yes (Hospitalization)
  Sender: FDA-Public Use
  Company Number: US-AUROBINDO-AUR-APL-2019-106159

PATIENT
  Age: 17 Year
  Sex: Female
  Weight: 87.52 kg

DRUGS (6)
  1. AMANTADINE. [Concomitant]
     Active Substance: AMANTADINE HYDROCHLORIDE
     Indication: PRODUCT USED FOR UNKNOWN INDICATION
     Dosage: 100 MILLIGRAM, TWO TIMES A DAY
     Route: 065
  2. CLOZAPINE TABLET [Suspect]
     Active Substance: CLOZAPINE
     Indication: AGGRESSION
     Dosage: UNK (ONE AND HALF TABLET AT BED TIME)
     Route: 048
  3. CLONIDINE. [Concomitant]
     Active Substance: CLONIDINE
     Indication: PRODUCT USED FOR UNKNOWN INDICATION
     Dosage: 0.1 MILLIGRAM, TWO TIMES A DAY
     Route: 065
  4. CLOZAPINE TABLET [Suspect]
     Active Substance: CLOZAPINE
     Indication: DEPRESSION
  5. CLOZAPINE TABLET [Suspect]
     Active Substance: CLOZAPINE
     Indication: PSYCHOTIC DISORDER
  6. LAMICTAL [Concomitant]
     Active Substance: LAMOTRIGINE
     Indication: PRODUCT USED FOR UNKNOWN INDICATION
     Dosage: 200 MILLIGRAM, DAILY
     Route: 065

REACTIONS (1)
  - Overdose [Unknown]

NARRATIVE: CASE EVENT DATE: 20191125
